FAERS Safety Report 8021913-8 (Version None)
Quarter: 2011Q4

REPORT INFORMATION
  Report Type: 
  Country: None (occurrence: None)
  Receive Date: 20111230
  Receipt Date: 20111216
  Transmission Date: 20120403
  Serious: Yes (Hospitalization)
  Sender: FDA-Public Use
  Company Number: 2011SP058828

PATIENT
  Sex: Female

DRUGS (1)
  1. DULERA ORAL INHALATION [Suspect]
     Indication: PRODUCT USED FOR UNKNOWN INDICATION
     Dosage: INH
     Route: 055
     Dates: start: 20111101

REACTIONS (1)
  - MYOCARDIAL INFARCTION [None]
